FAERS Safety Report 8182203-6 (Version None)
Quarter: 2012Q1

REPORT INFORMATION
  Report Type: 
  Country: None (occurrence: None)
  Receive Date: 20120302
  Receipt Date: 20120223
  Transmission Date: 20120608
  Serious: Yes (Other)
  Sender: FDA-Public Use
  Company Number: DE-ROXANE LABORATORIES, INC.-2012-RO-00724RO

PATIENT
  Age: 81 Year
  Sex: Female

DRUGS (3)
  1. AMLODIPINE [Suspect]
     Dosage: 10 MG
  2. DIOVAN [Suspect]
  3. TORSEMIDE [Suspect]

REACTIONS (2)
  - PERIODONTITIS [None]
  - GINGIVAL HYPERPLASIA [None]
